FAERS Safety Report 17339037 (Version 1)
Quarter: 2020Q1

REPORT INFORMATION
  Report Type: Spontaneous
  Country: US (occurrence: US)
  Receive Date: 20200129
  Receipt Date: 20200129
  Transmission Date: 20200409
  Serious: No
  Sender: FDA-Public Use
  Company Number: US-SA-2020SA018257

PATIENT
  Age: 67 Year
  Sex: Female

DRUGS (1)
  1. DUPIXENT [Suspect]
     Active Substance: DUPILUMAB
     Dosage: UNK UNK, PRN
     Route: 058
     Dates: start: 201912

REACTIONS (5)
  - Upper-airway cough syndrome [Unknown]
  - Sinusitis [Unknown]
  - Pyrexia [Unknown]
  - Product use issue [Unknown]
  - Oral herpes [Unknown]

NARRATIVE: CASE EVENT DATE: 201912
